FAERS Safety Report 7090869-7 (Version None)
Quarter: 2010Q4

REPORT INFORMATION
  Report Type: 
  Country: None (occurrence: None)
  Receive Date: 20101109
  Receipt Date: 20101102
  Transmission Date: 20110411
  Serious: Yes (Other)
  Sender: FDA-Public Use
  Company Number: JP-BAYER-201015558BYL

PATIENT
  Age: 64 Year
  Sex: Male
  Weight: 112 kg

DRUGS (19)
  1. NEXAVAR [Suspect]
     Indication: HEPATIC NEOPLASM MALIGNANT
     Dosage: UNIT DOSE: 200 MG
     Route: 048
     Dates: start: 20100316, end: 20100720
  2. VASOLAN [Suspect]
     Route: 048
     Dates: start: 20100527
  3. TENORMIN [Suspect]
     Route: 048
     Dates: start: 20100527
  4. LASIX [Concomitant]
     Dosage: SINCE BEFORE ADMINISTRATION
     Route: 048
  5. ALOSITOL [Concomitant]
     Dosage: SINCE BEFORE ADMINISTRATION
     Route: 048
  6. TAKEPRON [Concomitant]
     Dosage: SINCE BEFORE ADMINISTRATION
     Route: 048
  7. ADALAT-L20 [Concomitant]
     Dosage: UNIT DOSE: 20 MG
     Route: 048
     Dates: end: 20100527
  8. ARTIST [Concomitant]
     Dosage: SINCE BEFORE ADMINISTRATION
     Route: 048
     Dates: end: 20100527
  9. URSO 250 [Concomitant]
     Dosage: SINCE BEFORE ADMINISTRATION
     Route: 048
  10. AMOBAN [Concomitant]
     Indication: INSOMNIA
     Dosage: TOTAL DAILY DOSE: 7.5 MG
     Route: 048
  11. PURSENNID [Concomitant]
     Dosage: SINCE BEFORE ADMINISTRATION
     Route: 048
  12. GASCON [Concomitant]
     Dosage: SINCE BEFORE ADMINISTRATION
     Route: 048
  13. GASMOTIN [Concomitant]
     Dosage: SINCE BEFORE ADMINISTRATION
     Route: 048
  14. MAGLAX [Concomitant]
     Dosage: SINCE BEFORE ADMINISTRATION
     Route: 048
  15. DIGOXIN [Concomitant]
     Dosage: SINCE BEFORE ADMINISTRATION
     Route: 048
     Dates: end: 20100527
  16. SUNRYTHM [Concomitant]
     Dosage: SINCE BEFORE ADMINISTRATION
     Route: 048
     Dates: end: 20100527
  17. MINOFIT [Concomitant]
     Dosage: TOTAL DAILY DOSE: 80 ML
     Route: 042
     Dates: end: 20100531
  18. GLYCYRON [Concomitant]
     Route: 048
     Dates: start: 20100601
  19. VITAMEDIN [Concomitant]
     Indication: FLUID REPLACEMENT
     Route: 042
     Dates: start: 20100709

REACTIONS (3)
  - ANGINA PECTORIS [None]
  - GLOSSITIS [None]
  - INFECTION [None]
